FAERS Safety Report 7446640-7 (Version None)
Quarter: 2011Q2

REPORT INFORMATION
  Report Type: 
  Country: None (occurrence: None)
  Receive Date: 20110429
  Receipt Date: 20110420
  Transmission Date: 20111010
  Serious: Yes (Hospitalization)
  Sender: FDA-Public Use
  Company Number: JP-ASTRAZENECA-2011SE19658

PATIENT
  Age: 59 Year
  Sex: Male
  Weight: 61 kg

DRUGS (12)
  1. HUMALOG [Concomitant]
     Dosage: 8-0-6-0
     Route: 058
  2. ACTOS [Concomitant]
     Route: 048
  3. CRESTOR [Concomitant]
     Route: 048
  4. GLUFAST [Concomitant]
     Route: 048
  5. FLIVAS OD [Concomitant]
     Route: 048
  6. METFORMIN HCL [Concomitant]
     Dosage: 250 MG IN THE MORNING AND 500 MG IN THE EVENING
     Route: 048
  7. PLAVIX [Suspect]
     Indication: CEREBRAL INFARCTION
     Route: 048
     Dates: start: 20080101
  8. DIOVAN [Concomitant]
     Route: 048
  9. ATELEC [Concomitant]
     Route: 048
  10. FLUITRAN [Concomitant]
     Route: 048
  11. TAKEPRON [Concomitant]
     Route: 048
  12. IRESSA [Suspect]
     Indication: LUNG CARCINOMA CELL TYPE UNSPECIFIED RECURRENT
     Route: 048
     Dates: start: 20110114, end: 20110121

REACTIONS (1)
  - PULMONARY ALVEOLAR HAEMORRHAGE [None]
